FAERS Safety Report 14196076 (Version 1)
Quarter: 2017Q4

REPORT INFORMATION
  Report Type: Spontaneous
  Country: JP (occurrence: JP)
  Receive Date: 20171116
  Receipt Date: 20171116
  Transmission Date: 20180321
  Serious: Yes (Hospitalization, Other)
  Sender: FDA-Public Use
  Company Number: JP-PFIZER INC-2015078092

PATIENT
  Age: 62 Year
  Sex: Male

DRUGS (3)
  1. INLYTA [Suspect]
     Active Substance: AXITINIB
     Dosage: 14 MG, DAILY
     Route: 048
     Dates: start: 20140428
  2. INLYTA [Suspect]
     Active Substance: AXITINIB
     Indication: METASTATIC RENAL CELL CARCINOMA
     Dosage: 10 MG, DAILY
     Route: 048
     Dates: start: 20140415
  3. INLYTA [Suspect]
     Active Substance: AXITINIB
     Dosage: 20 MG, DAILY
     Route: 048
     Dates: start: 20140513

REACTIONS (17)
  - Head discomfort [Recovered/Resolved]
  - Palmar-plantar erythrodysaesthesia syndrome [Recovering/Resolving]
  - Cough [Recovering/Resolving]
  - Hypertension [Recovering/Resolving]
  - Dehydration [Recovering/Resolving]
  - Diarrhoea [Recovering/Resolving]
  - Stomatitis [Recovering/Resolving]
  - Dysphonia [Recovering/Resolving]
  - Dyspnoea [Recovering/Resolving]
  - Decreased appetite [Recovering/Resolving]
  - Blood pressure increased [Unknown]
  - Pyrexia [Recovering/Resolving]
  - Night sweats [Recovering/Resolving]
  - Hepatic function abnormal [Recovering/Resolving]
  - Vomiting [Recovering/Resolving]
  - Malaise [Recovering/Resolving]
  - Weight decreased [Recovering/Resolving]

NARRATIVE: CASE EVENT DATE: 20140516
